FAERS Safety Report 8267588-4 (Version None)
Quarter: 2012Q2

REPORT INFORMATION
  Report Type: 
  Country: None (occurrence: None)
  Receive Date: 20120409
  Receipt Date: 20120330
  Transmission Date: 20120825
  Serious: Yes (Other)
  Sender: FDA-Public Use
  Company Number: JP-ELI_LILLY_AND_COMPANY-JP201203004466

PATIENT
  Age: 38 Year
  Sex: Female

DRUGS (10)
  1. ZYPREXA [Suspect]
     Dosage: 10 MG, QD
     Route: 048
     Dates: start: 20111116, end: 20111220
  2. ZYPREXA [Suspect]
     Dosage: 10 MG, QD
     Route: 048
     Dates: start: 20120104, end: 20120214
  3. ZOLPIDEM [Concomitant]
     Dosage: UNK
     Dates: end: 20120103
  4. ZYPREXA [Suspect]
     Dosage: 15 MG, QD
     Route: 048
     Dates: start: 20111221, end: 20120103
  5. ZYPREXA [Suspect]
     Dosage: 10 MG, QD
     Route: 048
     Dates: start: 20120222, end: 20120313
  6. AKINETON [Concomitant]
     Dosage: UNK
     Dates: end: 20120103
  7. ZYPREXA [Suspect]
     Dosage: 15 MG, QD
     Route: 048
     Dates: start: 20120215, end: 20120221
  8. LONASEN [Concomitant]
     Dosage: 8 MG, UNKNOWN
     Dates: end: 20120103
  9. INVEGA [Concomitant]
     Dosage: 3 MG, UNKNOWN
     Dates: start: 20120104, end: 20120110
  10. LORAZEPAM [Concomitant]
     Dosage: 2 DF, PRN
     Route: 048
     Dates: start: 20120111

REACTIONS (2)
  - WHITE BLOOD CELL COUNT DECREASED [None]
  - BLOOD PROLACTIN INCREASED [None]
